FAERS Safety Report 22115758 (Version 1)
Quarter: 2023Q1

REPORT INFORMATION
  Report Type: Spontaneous
  Country: CN (occurrence: CN)
  Receive Date: 20230320
  Receipt Date: 20230320
  Transmission Date: 20230418
  Serious: Yes (Other)
  Sender: FDA-Public Use
  Company Number: CN-ASTELLAS-2023US008244

PATIENT
  Age: 60 Year
  Sex: Male
  Weight: 65 kg

DRUGS (1)
  1. HARNAL [Suspect]
     Active Substance: TAMSULOSIN HYDROCHLORIDE
     Indication: Benign prostatic hyperplasia
     Dosage: 1 DF,QD
     Route: 048
     Dates: start: 20230223, end: 20230307

REACTIONS (5)
  - Haemorrhage urinary tract [Unknown]
  - Haematuria [Unknown]
  - Dysuria [Unknown]
  - White blood cells urine positive [Unknown]
  - Proteinuria [Unknown]

NARRATIVE: CASE EVENT DATE: 20230307
